FAERS Safety Report 6245063-6 (Version None)
Quarter: 2009Q2

REPORT INFORMATION
  Report Type: 
  Country: None (occurrence: None)
  Receive Date: 20090619
  Receipt Date: 20090120
  Transmission Date: 20091009
  Serious: Yes (Hospitalization)
  Sender: FDA-Public Use
  Company Number: 2009PL000070

PATIENT
  Age: 29 Year
  Sex: Male
  Weight: 62 kg

DRUGS (3)
  1. AZATHIOPRINE [Suspect]
     Indication: CROHN'S DISEASE
     Dosage: 150 MG;PO
     Route: 048
     Dates: start: 20061116, end: 20061116
  2. PLACEBO (PLACEBO) LYOPHILIZED POWDER (NO PREF. NAME) [Suspect]
     Indication: CROHN'S DISEASE
     Dosage: 315 MG;QD;IV
     Route: 042
     Dates: start: 20061130
  3. BUTYLSCOPOLAMINE [Concomitant]

REACTIONS (1)
  - PANCREATITIS ACUTE [None]
